FAERS Safety Report 4658922-2 (Version None)
Quarter: 2005Q2

REPORT INFORMATION
  Report Type: 
  Country: None (occurrence: None)
  Receive Date: 20050509
  Receipt Date: 20050426
  Transmission Date: 20051028
  Serious: Yes (Other)
  Sender: FDA-Public Use
  Company Number: 2005066755

PATIENT
  Age: 37 Year
  Sex: Male
  Weight: 113.3993 kg

DRUGS (10)
  1. BEXTRA [Suspect]
     Indication: ARTHRITIS
     Dates: start: 20010501, end: 20020101
  2. BEXTRA [Suspect]
     Indication: INTERVERTEBRAL DISC DEGENERATION
     Dates: start: 20010501, end: 20020101
  3. CELEBREX [Suspect]
     Indication: ARTHRITIS
     Dosage: 200 MG (200 MG, 1 IN 1 D)
     Dates: start: 20020101
  4. CELEBREX [Suspect]
     Indication: INTERVERTEBRAL DISC DEGENERATION
     Dosage: 200 MG (200 MG, 1 IN 1 D)
     Dates: start: 20020101
  5. DILANTIN [Suspect]
     Indication: CONVULSION
     Dosage: 300 MG (100 MG, 3 IN 1 D),
     Dates: start: 20020101
  6. NAPROXEN [Suspect]
     Indication: PAIN
     Dates: start: 20020101
  7. ESCITALOPRAM OXALATE [Concomitant]
  8. LANSOPRAZOLE [Concomitant]
  9. ALPRAZOLAM [Concomitant]
  10. FLURAZEPAM HYDROCHLORIDE (FLURAZEPAM HYDROCHLORIDE) [Concomitant]

REACTIONS (5)
  - CONVULSION [None]
  - DRUG INEFFECTIVE [None]
  - ECONOMIC PROBLEM [None]
  - MENTAL DISORDER [None]
  - PAIN [None]
